FAERS Safety Report 9395246 (Version 2)
Quarter: 2013Q4

REPORT INFORMATION
  Report Type: Spontaneous
  Country: US (occurrence: US)
  Receive Date: 20130711
  Receipt Date: 20131010
  Transmission Date: 20140711
  Serious: No
  Sender: FDA-Public Use
  Company Number: US-ASTELLAS-2013US005889

PATIENT
  Age: 89 Year
  Sex: Female
  Weight: 54 kg

DRUGS (2)
  1. MYRBETRIQ [Suspect]
     Indication: HYPERTONIC BLADDER
     Dosage: 50 MG, UID/QD
     Route: 048
     Dates: end: 201307
  2. MYRBETRIQ [Suspect]
     Dosage: 25 MG, UID/QD
     Route: 048

REACTIONS (3)
  - Drug ineffective [Unknown]
  - Chromaturia [Recovered/Resolved]
  - Urticaria [Recovering/Resolving]
